FAERS Safety Report 17544529 (Version 1)
Quarter: 2020Q1

REPORT INFORMATION
  Report Type: Spontaneous
  Country: DE (occurrence: DE)
  Receive Date: 20200316
  Receipt Date: 20200316
  Transmission Date: 20200409
  Serious: Yes (Other)
  Sender: FDA-Public Use
  Company Number: DE-PFIZER INC-2020107990

PATIENT

DRUGS (2)
  1. CYTOTEC [Suspect]
     Active Substance: MISOPROSTOL
     Indication: LABOUR INDUCTION
  2. CYTOTEC [Suspect]
     Active Substance: MISOPROSTOL
     Indication: POSTMATURE BABY
     Dosage: 2 DF, UNK (2 TABLETS IN TOTAL 4 HOURS APART)
     Route: 064
     Dates: start: 20160404, end: 20160404

REACTIONS (2)
  - Foetal exposure during delivery [Unknown]
  - Apgar score low [Recovered/Resolved]

NARRATIVE: CASE EVENT DATE: 20160404
